FAERS Safety Report 7335952-3 (Version None)
Quarter: 2011Q1

REPORT INFORMATION
  Report Type: 
  Country: None (occurrence: None)
  Receive Date: 20110307
  Receipt Date: 20110302
  Transmission Date: 20110831
  Serious: No
  Sender: FDA-Public Use
  Company Number: US-TEVA-269476USA

PATIENT
  Age: 49 Year
  Sex: Female

DRUGS (4)
  1. COPAXONE [Suspect]
     Indication: MULTIPLE SCLEROSIS
     Route: 058
  2. NATALIZUMAB [Suspect]
  3. INTERFERON BETA NOS [Suspect]
  4. INFLIXIMAB [Suspect]

REACTIONS (1)
  - DIZZINESS [None]
